FAERS Safety Report 12907451 (Version 15)
Quarter: 2021Q4

REPORT INFORMATION
  Report Type: Report from Study
  Country: CA (occurrence: CA)
  Receive Date: 20161103
  Receipt Date: 20211013
  Transmission Date: 20220303
  Serious: Yes (Hospitalization, Other)
  Sender: FDA-Public Use
  Company Number: PHHY2013CA143590

PATIENT
  Age: 90 Year
  Sex: Female

DRUGS (10)
  1. SANDOSTATIN LAR DEPOT [Suspect]
     Active Substance: OCTREOTIDE ACETATE
     Indication: Acromegaly
     Dosage: 20 MG, EVERY 4 WEEKS
     Route: 030
     Dates: start: 20121213
  2. SANDOSTATIN LAR DEPOT [Suspect]
     Active Substance: OCTREOTIDE ACETATE
     Dosage: 10 MG, QMO (ONCE A MONTH)
     Route: 030
  3. SANDOSTATIN LAR DEPOT [Suspect]
     Active Substance: OCTREOTIDE ACETATE
     Dosage: 10 MG, TIW (EVERY 3 WEEKS)
     Route: 030
  4. SANDOSTATIN LAR DEPOT [Suspect]
     Active Substance: OCTREOTIDE ACETATE
     Dosage: 20 MG, QMO
     Route: 030
  5. SANDOSTATIN LAR DEPOT [Suspect]
     Active Substance: OCTREOTIDE ACETATE
     Dosage: 10 MG, Q4W
     Route: 030
  6. MORPHINE [Suspect]
     Active Substance: MORPHINE
     Indication: Product used for unknown indication
     Route: 065
  7. DUREZOL [Concomitant]
     Active Substance: DIFLUPREDNATE
     Indication: Glaucoma
     Dosage: 1 DROP IN RIGHT EYE
     Route: 057
     Dates: start: 2017
  8. ZYMAR [Concomitant]
     Active Substance: GATIFLOXACIN
     Indication: Glaucoma
     Dosage: QID FOR 7 DAYS (IN RIGHT EYE)
     Route: 057
     Dates: start: 2017
  9. CANDESARTAN [Concomitant]
     Active Substance: CANDESARTAN
     Indication: Product used for unknown indication
     Dosage: UNK, QD (AM)
     Route: 065
  10. HYDROCHLOROTHIAZIDE [Concomitant]
     Active Substance: HYDROCHLOROTHIAZIDE
     Indication: Product used for unknown indication
     Dosage: UNK, QD (AM)
     Route: 065

REACTIONS (23)
  - Hip fracture [Recovered/Resolved]
  - Pneumonia [Unknown]
  - Cough [Recovered/Resolved]
  - Fall [Unknown]
  - Pain [Unknown]
  - Bradycardia [Unknown]
  - Malaise [Unknown]
  - Depression [Unknown]
  - Influenza [Recovering/Resolving]
  - Arthralgia [Unknown]
  - Hypotension [Unknown]
  - Heart rate irregular [Unknown]
  - Dizziness [Unknown]
  - Blood pressure decreased [Unknown]
  - Blood pressure systolic increased [Unknown]
  - Urinary tract infection [Unknown]
  - Flank pain [Unknown]
  - Intervertebral disc degeneration [Unknown]
  - Contusion [Unknown]
  - Back pain [Recovered/Resolved]
  - Inappropriate schedule of product administration [Unknown]
  - Diarrhoea [Unknown]
  - Rash [Recovering/Resolving]

NARRATIVE: CASE EVENT DATE: 20151001
